FAERS Safety Report 25476000 (Version 1)
Quarter: 2025Q2

REPORT INFORMATION
  Report Type: Report from Study
  Country: US (occurrence: US)
  Receive Date: 20250625
  Receipt Date: 20250625
  Transmission Date: 20250717
  Serious: Yes (Hospitalization)
  Sender: TAKEDA
  Company Number: US-TAKEDA-2025TUS056809

PATIENT
  Age: 72 Year
  Sex: Female

DRUGS (8)
  1. IXAZOMIB [Suspect]
     Active Substance: IXAZOMIB
     Indication: Plasma cell myeloma
  2. REVLIMID [Suspect]
     Active Substance: LENALIDOMIDE
     Indication: Plasma cell myeloma
  3. DEXAMETHASONE [Concomitant]
     Active Substance: DEXAMETHASONE
  4. CALCIUM\CHOLECALCIFEROL [Concomitant]
     Active Substance: CALCIUM\CHOLECALCIFEROL
  5. VITAMIN D2 [Concomitant]
     Active Substance: ERGOCALCIFEROL
  6. FERROUS SULFATE [Concomitant]
     Active Substance: FERROUS SULFATE
  7. ELIQUIS [Concomitant]
     Active Substance: APIXABAN
  8. ANAGRELIDE [Concomitant]
     Active Substance: ANAGRELIDE

REACTIONS (3)
  - Fall [Recovered/Resolved]
  - Patella fracture [Recovered/Resolved]
  - Haematocrit decreased [Unknown]

NARRATIVE: CASE EVENT DATE: 20250513
